FAERS Safety Report 18694759 (Version 1)
Quarter: 2020Q4

REPORT INFORMATION
  Report Type: Spontaneous
  Country: US (occurrence: US)
  Receive Date: 20201231
  Receipt Date: 20201231
  Transmission Date: 20210114
  Serious: No
  Sender: FDA-Public Use
  Company Number: None

PATIENT
  Sex: Female

DRUGS (2)
  1. CAPECITABINE 150MG NOVADOZ PHARMACEUTICALS [Suspect]
     Active Substance: CAPECITABINE
     Indication: CHOLANGIOCARCINOMA
     Dosage: FREQUENCY: TWICE DAILY 14 ON 7 OFF
     Route: 048
     Dates: start: 202011
  2. CAPECITABINE 150MG NOVADOZ PHARMACEUTICALS [Suspect]
     Active Substance: CAPECITABINE
     Indication: METASTASES TO LIVER
     Dosage: FREQUENCY: TWICE DAILY 14 ON 7 OFF
     Route: 048
     Dates: start: 202011

REACTIONS (4)
  - Complication associated with device [None]
  - Drug ineffective [None]
  - Pain in extremity [None]
  - Fatigue [None]
